FAERS Safety Report 13134451 (Version 1)
Quarter: 2017Q1

REPORT INFORMATION
  Report Type: Spontaneous
  Country: DE (occurrence: DE)
  Receive Date: 20170120
  Receipt Date: 20170120
  Transmission Date: 20170428
  Serious: Yes (Congenital Anomaly, Other)
  Sender: FDA-Public Use
  Company Number: DE-TEVA-728612GER

PATIENT
  Age: 1 Day
  Sex: Male
  Weight: 2.76 kg

DRUGS (3)
  1. TOPIRAMATE. [Suspect]
     Active Substance: TOPIRAMATE
     Dosage: 125 MILLIGRAM DAILY; 5 X 25 MG/ D (125 MG DAILY) FROM GW 29+6
     Route: 064
     Dates: start: 20160530, end: 20160811
  2. TOPIRAMATE. [Suspect]
     Active Substance: TOPIRAMATE
     Indication: EPILEPSY
     Dosage: 100 MILLIGRAM DAILY;
     Route: 064
     Dates: start: 20151103, end: 20160529
  3. FOLIO (NAHRUNGSERGAENZUNGSMITTEL) [Concomitant]
     Indication: VITAMIN SUPPLEMENTATION
     Dosage: .4 MILLIGRAM DAILY;
     Route: 064
     Dates: start: 20160129, end: 20160811

REACTIONS (3)
  - Small for dates baby [Unknown]
  - Foetal exposure during pregnancy [Unknown]
  - Microcephaly [Unknown]

NARRATIVE: CASE EVENT DATE: 20160811
